FAERS Safety Report 24377920 (Version 2)
Quarter: 2024Q4

REPORT INFORMATION
  Report Type: Spontaneous
  Country: DE (occurrence: DE)
  Receive Date: 20240930
  Receipt Date: 20241211
  Transmission Date: 20250115
  Serious: Yes (Hospitalization)
  Sender: AUROBINDO
  Company Number: DE-PFIZER INC-PV202400121386

PATIENT
  Age: 67 Year
  Sex: Female
  Weight: 85 kg

DRUGS (11)
  1. EXEMESTANE [Suspect]
     Active Substance: EXEMESTANE
     Indication: Breast cancer
     Dosage: 25 MILLIGRAM, ONCE A DAY
     Route: 048
     Dates: start: 20220504
  2. PALBOCICLIB [Suspect]
     Active Substance: PALBOCICLIB
     Indication: Breast cancer
     Dosage: 125 MG, DAILY FROM DAY 1 TO DAY 21 EVERY 28-DAY CYCLE
     Route: 065
     Dates: start: 20220504, end: 20240428
  3. DICLOFENAC SODIUM [Concomitant]
     Active Substance: DICLOFENAC SODIUM
     Indication: Bone pain
     Dosage: UNK
     Route: 048
     Dates: start: 20220524
  4. FENTANYL [Concomitant]
     Active Substance: FENTANYL
     Indication: Bone pain
     Dosage: UNK
     Route: 048
     Dates: start: 20220712
  5. GLIMEPIRIDE [Concomitant]
     Active Substance: GLIMEPIRIDE
     Indication: Prophylaxis
     Dosage: UNK
     Route: 048
  6. HYDROMORPHONE [Concomitant]
     Active Substance: HYDROMORPHONE
     Indication: Bone pain
     Dosage: UNK
     Route: 048
     Dates: start: 20231019
  7. METFORMIN [Concomitant]
     Active Substance: METFORMIN HYDROCHLORIDE
     Indication: Prophylaxis
     Dosage: UNK
     Route: 048
  8. NOVALGIN (METAMIZOLE SODIUM) [Concomitant]
     Active Substance: METAMIZOLE SODIUM
     Indication: Bone pain
     Dosage: UNK
     Route: 048
     Dates: start: 20231017
  9. AMLODIPINE BESYLATE\OLMESARTAN MEDOXOMIL [Concomitant]
     Active Substance: AMLODIPINE BESYLATE\OLMESARTAN MEDOXOMIL
     Indication: Prophylaxis
     Dosage: UNK
     Route: 048
  10. Zoledronsaure Altan [Concomitant]
     Indication: Prophylaxis
     Dosage: 4/100 MILLIGRAM/MILILITER
     Route: 048
     Dates: start: 20220524
  11. ZOLEDRONIC ACID [Concomitant]
     Active Substance: ZOLEDRONIC ACID
     Indication: Prophylaxis
     Dosage: 4MG/100ML
     Route: 048
     Dates: start: 20220524

REACTIONS (2)
  - Biliary colic [Recovered/Resolved]
  - Cholelithiasis [Recovered/Resolved]

NARRATIVE: CASE EVENT DATE: 20240520
